FAERS Safety Report 16580193 (Version 2)
Quarter: 2019Q3

REPORT INFORMATION
  Report Type: Report from Study
  Country: ZA (occurrence: ZA)
  Receive Date: 20190716
  Receipt Date: 20190813
  Transmission Date: 20191004
  Serious: Yes (Hospitalization, Other)
  Sender: FDA-Public Use
  Company Number: ZA-SA-2019SA163373

PATIENT
  Age: 45 Year
  Sex: Female

DRUGS (8)
  1. INSULIN GLULISINE [Suspect]
     Active Substance: INSULIN GLULISINE
     Dosage: BEFORE SUPPER-14 UNITS, BEFORE LUNCH-16UNITS, BEFORE BREAKFAST-14 UNITS, TID
     Dates: start: 20190515
  2. EZETROL [Concomitant]
     Active Substance: EZETIMIBE
     Dosage: 1XD-10 MG, QD
     Dates: start: 20170501
  3. TOUJEO [Suspect]
     Active Substance: INSULIN GLARGINE
     Dosage: AT BED TIME-30 U, HS
     Dates: start: 20190515
  4. CLOPIWIN [Concomitant]
     Active Substance: CLOPIDOGREL BISULFATE
     Dosage: 1XD-10 MG, QD
     Dates: start: 20170501
  5. TREPILINE [AMITRIPTYLINE] [Concomitant]
     Active Substance: AMITRIPTYLINE
     Dosage: 1XD-100 MG, QD
     Dates: start: 20190515
  6. FORXIGA [Concomitant]
     Active Substance: DAPAGLIFLOZIN
     Dosage: 5 MG, QD
     Dates: start: 20170501
  7. OPTISULIN [INSULIN GLARGINE] [Suspect]
     Active Substance: INSULIN GLARGINE
     Dosage: UNK
  8. ASPAVOR [Concomitant]
     Active Substance: ATORVASTATIN
     Dosage: 1XD-40 MG, QD
     Dates: start: 20170501

REACTIONS (6)
  - Injection site haemorrhage [Not Recovered/Not Resolved]
  - Epilepsy [Unknown]
  - Weight decreased [Unknown]
  - Cardiovascular disorder [Not Recovered/Not Resolved]
  - Weight increased [Not Recovered/Not Resolved]
  - Urine abnormality [Not Recovered/Not Resolved]

NARRATIVE: CASE EVENT DATE: 20190615
